FAERS Safety Report 18766656 (Version 2)
Quarter: 2021Q1

REPORT INFORMATION
  Report Type: Spontaneous
  Country: US (occurrence: US)
  Receive Date: 20210121
  Receipt Date: 20210128
  Transmission Date: 20210419
  Serious: Yes (Life-Threatening, Hospitalization, Other)
  Sender: FDA-Public Use
  Company Number: US-ADVANZ PHARMA-202101000121

PATIENT

DRUGS (1)
  1. HYDROXYCHLOROQUINE [Suspect]
     Active Substance: HYDROXYCHLOROQUINE
     Indication: SCLERODERMA
     Dosage: 200 MG, BID
     Route: 065

REACTIONS (15)
  - Restrictive cardiomyopathy [Recovering/Resolving]
  - Cardiac hypertrophy [Recovering/Resolving]
  - Systolic dysfunction [Recovering/Resolving]
  - Oedema peripheral [Recovering/Resolving]
  - Tricuspid valve incompetence [Recovering/Resolving]
  - Cardiac failure [Recovering/Resolving]
  - Left ventricular dysfunction [Recovering/Resolving]
  - Diastolic dysfunction [Recovering/Resolving]
  - Syncope [Recovering/Resolving]
  - Coronary artery occlusion [Recovering/Resolving]
  - Cardiotoxicity [Recovering/Resolving]
  - Atrioventricular block complete [Recovering/Resolving]
  - Myocardial infarction [Recovering/Resolving]
  - Cardiogenic shock [Recovering/Resolving]
  - Dyspnoea [Recovering/Resolving]
